FAERS Safety Report 9746379 (Version 2)
Quarter: 2013Q4

REPORT INFORMATION
  Report Type: Spontaneous
  Country: BR (occurrence: BR)
  Receive Date: 20131211
  Receipt Date: 20131226
  Transmission Date: 20140711
  Serious: Yes (Other)
  Sender: FDA-Public Use
  Company Number: BR-PFIZER INC-2013351946

PATIENT
  Age: 55 Year
  Sex: Female
  Weight: 90 kg

DRUGS (3)
  1. CITALOR [Suspect]
     Indication: BLOOD CHOLESTEROL
     Dosage: 10 MG, DAILY
     Route: 048
     Dates: start: 2011
  2. CITALOR [Suspect]
     Indication: BLOOD TRIGLYCERIDES
  3. SYNVISC-ONE [Concomitant]
     Indication: OSTEOARTHRITIS

REACTIONS (4)
  - Sciatic nerve injury [Not Recovered/Not Resolved]
  - Osteoarthritis [Not Recovered/Not Resolved]
  - Headache [Unknown]
  - Insomnia [Unknown]
